FAERS Safety Report 22300880 (Version 2)
Quarter: 2023Q2

REPORT INFORMATION
  Report Type: Spontaneous
  Country: US (occurrence: US)
  Receive Date: 20230509
  Receipt Date: 20230511
  Transmission Date: 20230721
  Serious: No
  Sender: FDA-Public Use
  Company Number: US-SA-SAC20230505001044

PATIENT
  Sex: Female
  Weight: 54.4 kg

DRUGS (12)
  1. DUPIXENT [Suspect]
     Active Substance: DUPILUMAB
     Indication: Asthma
     Dosage: 300 MG, QOW
     Route: 058
  2. DUPIXENT [Suspect]
     Active Substance: DUPILUMAB
     Dosage: UNK
     Route: 030
  3. GABAPENTIN [Concomitant]
     Active Substance: GABAPENTIN
  4. FORTEO [Concomitant]
     Active Substance: TERIPARATIDE
  5. ESTRADIOL [Concomitant]
     Active Substance: ESTRADIOL
  6. TEMAZEPAM [Concomitant]
     Active Substance: TEMAZEPAM
  7. PROGESTERONE [Concomitant]
     Active Substance: PROGESTERONE
  8. ESOMEPRAZOLE MAGNESIUM [Concomitant]
     Active Substance: ESOMEPRAZOLE MAGNESIUM
  9. ALENDRONATE SODIUM [Concomitant]
     Active Substance: ALENDRONATE SODIUM
  10. MONTELUKAST SODIUM [Concomitant]
     Active Substance: MONTELUKAST SODIUM
  11. ALBUTEROL SULFATE [Concomitant]
     Active Substance: ALBUTEROL SULFATE
  12. PREDNISONE [Concomitant]
     Active Substance: PREDNISONE

REACTIONS (1)
  - Incorrect route of product administration [Unknown]
